FAERS Safety Report 6391799-6 (Version None)
Quarter: 2009Q4

REPORT INFORMATION
  Report Type: 
  Country: None (occurrence: None)
  Receive Date: 20091007
  Receipt Date: 20090903
  Transmission Date: 20100525
  Serious: No
  Sender: FDA-Public Use
  Company Number: US-BAYER-200932461NA

PATIENT
  Age: 21 Year
  Sex: Female

DRUGS (1)
  1. MIRENA [Suspect]
     Indication: CONTRACEPTION
     Route: 015
     Dates: start: 20081014

REACTIONS (5)
  - CHLAMYDIAL INFECTION [None]
  - GONORRHOEA [None]
  - PELVIC PAIN [None]
  - PURULENT DISCHARGE [None]
  - PYREXIA [None]
